FAERS Safety Report 6807467-X (Version None)
Quarter: 2010Q2

REPORT INFORMATION
  Report Type: 
  Country: None (occurrence: None)
  Receive Date: 20100629
  Receipt Date: 20081003
  Transmission Date: 20101027
  Serious: No
  Sender: FDA-Public Use
  Company Number: US-PFIZER INC-2008082419

PATIENT
  Sex: Male

DRUGS (22)
  1. TIKOSYN [Suspect]
     Indication: ATRIAL FIBRILLATION
  2. MIRAPEX [Suspect]
     Indication: PAIN IN EXTREMITY
  3. ALL OTHER THERAPEUTIC PRODUCTS [Concomitant]
  4. ULTRAM [Concomitant]
  5. ALTACE [Concomitant]
  6. FENOFIBRATE [Concomitant]
  7. ANDROGEL [Concomitant]
  8. ACTONEL [Concomitant]
  9. LANOXIN [Concomitant]
  10. PREDNISONE [Concomitant]
  11. WARFARIN [Concomitant]
  12. FLONASE [Concomitant]
  13. ZETIA [Concomitant]
  14. LUMIGAN [Concomitant]
  15. CAPSAICIN [Concomitant]
  16. GLUCOSAMINE [Concomitant]
  17. SAW PALMETTO [Concomitant]
  18. CENTRUM [Concomitant]
  19. VITAMIN B COMPLEX CAP [Concomitant]
  20. VITAMIN E [Concomitant]
  21. TUMS [Concomitant]
  22. CALCIUM CARBONATE [Concomitant]

REACTIONS (2)
  - ATRIAL FIBRILLATION [None]
  - LIBIDO INCREASED [None]
